FAERS Safety Report 24232897 (Version 2)
Quarter: 2024Q4

REPORT INFORMATION
  Report Type: Spontaneous
  Country: US (occurrence: US)
  Receive Date: 20240821
  Receipt Date: 20241108
  Transmission Date: 20250114
  Serious: No
  Sender: LEO PHARM
  Company Number: US-LEO Pharma-372765

PATIENT
  Age: 77 Year
  Sex: Male
  Weight: 88 kg

DRUGS (1)
  1. ADBRY [Suspect]
     Active Substance: TRALOKINUMAB-LDRM
     Indication: Dermatitis atopic
     Dosage: 600 MG SUBCUTANEOUS ON DAY 1; EXPIRATION DATE IS 31-AUG-2025
     Route: 058

REACTIONS (2)
  - Adverse drug reaction [Unknown]
  - Pruritus [Unknown]
